FAERS Safety Report 12649604 (Version 1)
Quarter: 2016Q3

REPORT INFORMATION
  Report Type: Spontaneous
  Country: US (occurrence: US)
  Receive Date: 20160812
  Receipt Date: 20160812
  Transmission Date: 20161109
  Serious: No
  Sender: FDA-Public Use
  Company Number: US-AMGEN-USASP2016104449

PATIENT
  Age: 46 Year
  Sex: Female

DRUGS (1)
  1. ENBREL [Suspect]
     Active Substance: ETANERCEPT
     Indication: PRODUCT USED FOR UNKNOWN INDICATION
     Dosage: 50 MG, QWK
     Route: 065
     Dates: start: 20160726

REACTIONS (5)
  - Injection site erythema [Unknown]
  - Injection site pain [Unknown]
  - Fatigue [Unknown]
  - Dizziness [Unknown]
  - Injection site swelling [Unknown]

NARRATIVE: CASE EVENT DATE: 2016
